FAERS Safety Report 25260564 (Version 2)
Quarter: 2025Q2

REPORT INFORMATION
  Report Type: Spontaneous
  Country: JP (occurrence: JP)
  Receive Date: 20250501
  Receipt Date: 20250510
  Transmission Date: 20250717
  Serious: Yes (Hospitalization)
  Sender: NOVO NORDISK
  Company Number: JP-NOVOPROD-1406100

PATIENT
  Age: 67 Year
  Sex: Female
  Weight: 59.7 kg

DRUGS (3)
  1. OZEMPIC [Suspect]
     Active Substance: SEMAGLUTIDE
     Indication: Type 2 diabetes mellitus
     Dosage: 0.25 MG, QW
     Route: 058
     Dates: start: 20250308, end: 20250308
  2. TRESIBA [Concomitant]
     Active Substance: INSULIN DEGLUDEC
     Indication: Type 2 diabetes mellitus
     Dosage: 10 IU, QD
     Route: 058
  3. TRESIBA [Concomitant]
     Active Substance: INSULIN DEGLUDEC
     Dosage: 20 IU, QD
     Route: 058

REACTIONS (8)
  - Pneumonia aspiration [Recovered/Resolved]
  - Cholecystitis acute [Recovered/Resolved]
  - Pulmonary fibrosis [Unknown]
  - Pleural effusion [Unknown]
  - Cardiomegaly [Unknown]
  - Ascites [Unknown]
  - Lymphadenopathy [Unknown]
  - Vomiting [Recovered/Resolved]

NARRATIVE: CASE EVENT DATE: 20250308
